FAERS Safety Report 10209728 (Version 2)
Quarter: 2014Q2

REPORT INFORMATION
  Report Type: Spontaneous
  Country: US (occurrence: US)
  Receive Date: 20140602
  Receipt Date: 20140616
  Transmission Date: 20141212
  Serious: No
  Sender: FDA-Public Use
  Company Number: US-009507513-1406USA000277

PATIENT
  Sex: 0

DRUGS (1)
  1. PRIMAXIN I.V. [Suspect]
     Dosage: UNK
     Dates: start: 2011

REACTIONS (1)
  - Rash [Unknown]
